FAERS Safety Report 4444590-1 (Version None)
Quarter: 2004Q3

REPORT INFORMATION
  Report Type: 
  Country: None (occurrence: None)
  Receive Date: 20040902
  Receipt Date: 20040817
  Transmission Date: 20050211
  Serious: Yes (Death)
  Sender: FDA-Public Use
  Company Number: 20040800370

PATIENT
  Sex: Female

DRUGS (2)
  1. BREVIBLOC [Suspect]
     Indication: SUPRAVENTRICULAR TACHYCARDIA
     Dosage: 500 OTHER OTHER IV
     Route: 042
     Dates: start: 20030101, end: 20030101
  2. BREVIBLOC [Suspect]
     Indication: SUPRAVENTRICULAR TACHYCARDIA
     Dosage: 50 OTHER IV
     Route: 042
     Dates: start: 20030101, end: 20030101

REACTIONS (1)
  - CARDIO-RESPIRATORY ARREST [None]
